FAERS Safety Report 7377230-2 (Version None)
Quarter: 2011Q1

REPORT INFORMATION
  Report Type: 
  Country: None (occurrence: None)
  Receive Date: 20110328
  Receipt Date: 20090527
  Transmission Date: 20110831
  Serious: No
  Sender: FDA-Public Use
  Company Number: 2009BI016440

PATIENT
  Age: 42 Year
  Sex: Female

DRUGS (3)
  1. TYSABRI [Suspect]
     Indication: MULTIPLE SCLEROSIS
     Route: 042
     Dates: start: 20090518, end: 20090917
  2. COPAXONE [Concomitant]
     Indication: MULTIPLE SCLEROSIS
     Route: 058
  3. TYSABRI [Suspect]
     Route: 042
     Dates: start: 20100902

REACTIONS (8)
  - MUSCULOSKELETAL STIFFNESS [None]
  - SOMNOLENCE [None]
  - MUSCULAR WEAKNESS [None]
  - ASTHENIA [None]
  - NAUSEA [None]
  - ABDOMINAL WALL CYST [None]
  - OEDEMA PERIPHERAL [None]
  - FATIGUE [None]
